FAERS Safety Report 12194511 (Version 1)
Quarter: 2016Q1

REPORT INFORMATION
  Report Type: Spontaneous
  Country: US (occurrence: US)
  Receive Date: 20160321
  Receipt Date: 20160321
  Transmission Date: 20160526
  Serious: No
  Sender: FDA-Public Use
  Company Number: US-PFIZER INC-2016112805

PATIENT
  Age: 73 Year
  Sex: Female
  Weight: 68.27 kg

DRUGS (4)
  1. ATORVASTATIN [Concomitant]
     Active Substance: ATORVASTATIN
     Dosage: 25 MG, DAILY
  2. MEDROL [Suspect]
     Active Substance: METHYLPREDNISOLONE
     Dosage: 4 MG, 1X/DAY (DECREASING, FOR 6 DAYS)
  3. METOPROLOL. [Concomitant]
     Active Substance: METOPROLOL
     Dosage: 25 MG, DAILY
  4. MEDROL [Suspect]
     Active Substance: METHYLPREDNISOLONE
     Indication: ERYTHEMA NODOSUM
     Dosage: 24 MG, 1X/DAY (6 TABLETS THE FIRST DAY, 4 MG)
     Dates: start: 20151216

REACTIONS (1)
  - Drug ineffective [Recovering/Resolving]
